FAERS Safety Report 6197144-3 (Version None)
Quarter: 2009Q2

REPORT INFORMATION
  Report Type: 
  Country: None (occurrence: None)
  Receive Date: 20090520
  Receipt Date: 20090515
  Transmission Date: 20091009
  Serious: Yes (Hospitalization)
  Sender: FDA-Public Use
  Company Number: US-B.I. PHARMACEUTICALS,INC./RIDGEFIELD-2009-BP-06134BP

PATIENT
  Sex: Male

DRUGS (3)
  1. FLOMAX [Suspect]
     Indication: PROSTATOMEGALY
     Dosage: .4MG
     Route: 048
     Dates: start: 19970101
  2. AZOR [Concomitant]
     Indication: HYPERTENSION
  3. ZOCOR [Concomitant]
     Indication: BLOOD CHOLESTEROL INCREASED

REACTIONS (1)
  - DYSURIA [None]
